FAERS Safety Report 13925267 (Version 2)
Quarter: 2017Q3

REPORT INFORMATION
  Report Type: Spontaneous
  Country: US (occurrence: US)
  Receive Date: 20170831
  Receipt Date: 20170901
  Transmission Date: 20171127
  Serious: Yes (Other)
  Sender: FDA-Public Use
  Company Number: US-JAZZ-2017-US-011176

PATIENT
  Age: 23 Year
  Sex: Female

DRUGS (12)
  1. PRIALT [Suspect]
     Active Substance: ZICONOTIDE ACETATE
     Dosage: 0.006 ?G, QH
     Route: 037
     Dates: start: 20170825
  2. GLOBULIN (IMMUNOGLOBULIN HUMAN NORMAL) [Concomitant]
     Active Substance: HUMAN IMMUNOGLOBULIN G
  3. LEVOTHYROXINE. [Concomitant]
     Active Substance: LEVOTHYROXINE
     Indication: PRODUCT USED FOR UNKNOWN INDICATION
  4. GABAPENTIN. [Concomitant]
     Active Substance: GABAPENTIN
     Indication: RESTLESS LEGS SYNDROME
     Dosage: 1800 MG QHS
  5. LIMBREL [Concomitant]
     Active Substance: DIETARY SUPPLEMENT\FLAVOCOXID
     Indication: INFLAMMATION
  6. LUNESTA [Concomitant]
     Active Substance: ESZOPICLONE
     Indication: SLEEP DISORDER
  7. HYDROCORTISONE. [Concomitant]
     Active Substance: HYDROCORTISONE
     Indication: PRODUCT USED FOR UNKNOWN INDICATION
     Dosage: 10 MG, UNK
  8. PRIALT [Suspect]
     Active Substance: ZICONOTIDE ACETATE
     Indication: PAIN
     Dosage: .125?G, QH
     Route: 037
     Dates: start: 201701
  9. CYMBALTA [Concomitant]
     Active Substance: DULOXETINE HYDROCHLORIDE
     Indication: PRODUCT USED FOR UNKNOWN INDICATION
  10. PRIALT [Suspect]
     Active Substance: ZICONOTIDE ACETATE
     Dosage: 0.066 ?G, QH
     Route: 037
  11. TRAZODONE [Concomitant]
     Active Substance: TRAZODONE HYDROCHLORIDE
     Indication: SLEEP DISORDER
  12. XARELTO [Concomitant]
     Active Substance: RIVAROXABAN

REACTIONS (21)
  - Weight bearing difficulty [Recovered/Resolved]
  - Loss of consciousness [Recovered/Resolved]
  - Concussion [Recovered/Resolved]
  - Pain [Not Recovered/Not Resolved]
  - Pulmonary embolism [Recovered/Resolved]
  - Splenomegaly [Recovered/Resolved]
  - Back pain [Recovered/Resolved]
  - Rectal haemorrhage [Recovered/Resolved]
  - Gastritis [Recovered/Resolved]
  - Groin pain [Recovered/Resolved]
  - Hot flush [Recovered/Resolved]
  - Head injury [Recovered/Resolved]
  - Nausea [Recovered/Resolved]
  - Haematochezia [Recovered/Resolved]
  - Cholelithiasis [Recovered/Resolved]
  - Megacolon [Recovered/Resolved]
  - Erythema migrans [Unknown]
  - Decreased appetite [Recovered/Resolved]
  - Device issue [Unknown]
  - Surgery [Unknown]
  - Weight decreased [Recovered/Resolved]

NARRATIVE: CASE EVENT DATE: 201708
